FAERS Safety Report 9767959 (Version 1)
Quarter: 2013Q4

REPORT INFORMATION
  Report Type: Spontaneous
  Country: US (occurrence: US)
  Receive Date: 20131217
  Receipt Date: 20131217
  Transmission Date: 20140711
  Serious: Yes (Hospitalization)
  Sender: FDA-Public Use
  Company Number: US-TEVA-450441USA

PATIENT
  Sex: Female
  Weight: 59.02 kg

DRUGS (7)
  1. PROAIR HFA [Suspect]
     Indication: DYSPNOEA
     Route: 055
  2. METOPROLOL [Concomitant]
     Indication: CARDIAC DISORDER
  3. LISINOPRIL [Concomitant]
     Indication: HYPERTENSION
  4. FUROSEMIDE [Concomitant]
     Dosage: DAILY
  5. FAMOTIDINE [Concomitant]
     Indication: DYSPEPSIA
  6. POTASSIUM CHLORIDE [Concomitant]
  7. DIGOXIN [Concomitant]
     Indication: HEART RATE

REACTIONS (2)
  - Cough [Not Recovered/Not Resolved]
  - Blood pressure decreased [Not Recovered/Not Resolved]
